FAERS Safety Report 6531241-5 (Version None)
Quarter: 2010Q1

REPORT INFORMATION
  Report Type: 
  Country: None (occurrence: None)
  Receive Date: 20100108
  Receipt Date: 20100104
  Transmission Date: 20100710
  Serious: Yes (Hospitalization)
  Sender: FDA-Public Use
  Company Number: HU-JNJFOC-20091001089

PATIENT
  Sex: Female

DRUGS (6)
  1. REMICADE [Suspect]
     Route: 042
     Dates: start: 20090601, end: 20090918
  2. REMICADE [Suspect]
     Indication: PSORIASIS
     Dosage: 3 INFUSIONS
     Route: 042
     Dates: start: 20090601, end: 20090918
  3. RIVOTRIL [Concomitant]
     Indication: MYOCLONUS
  4. DICLOFENAC SODIUM [Concomitant]
  5. SOLU-MEDROL [Concomitant]
  6. TONOGEN [Concomitant]
     Route: 058

REACTIONS (5)
  - ANAPHYLACTIC SHOCK [None]
  - BACK PAIN [None]
  - ENURESIS [None]
  - MUSCLE SPASMS [None]
  - MYOCLONUS [None]
